FAERS Safety Report 17209070 (Version 1)
Quarter: 2019Q4

REPORT INFORMATION
  Report Type: Spontaneous
  Country: US (occurrence: US)
  Receive Date: 20191227
  Receipt Date: 20191227
  Transmission Date: 20200122
  Serious: No
  Sender: FDA-Public Use
  Company Number: US-009507513-1912USA003684

PATIENT
  Sex: Female

DRUGS (2)
  1. NEXPLANON [Suspect]
     Active Substance: ETONOGESTREL
     Indication: CONTRACEPTION
     Dosage: 1 ROD, ONCE EVERY 3 YEARS
     Route: 059
     Dates: start: 2013, end: 2016
  2. NEXPLANON [Suspect]
     Active Substance: ETONOGESTREL
     Dosage: 1 ROD, ONCE EVERY 3 YEARS
     Route: 059
     Dates: start: 2016

REACTIONS (6)
  - Complication associated with device [Not Recovered/Not Resolved]
  - Implant site oedema [Unknown]
  - Weight increased [Unknown]
  - Implant site reaction [Unknown]
  - Implant site swelling [Unknown]
  - Complication of device removal [Not Recovered/Not Resolved]

NARRATIVE: CASE EVENT DATE: 20191204
